FAERS Safety Report 12860787 (Version 1)
Quarter: 2016Q4

REPORT INFORMATION
  Report Type: Report from Study
  Country: US (occurrence: US)
  Receive Date: 20161019
  Receipt Date: 20161019
  Transmission Date: 20170207
  Serious: Yes (Other)
  Sender: FDA-Public Use
  Company Number: US-BAYER-2016-109796

PATIENT
  Age: 62 Year
  Sex: Female
  Weight: 181.86 kg

DRUGS (19)
  1. ZYRTEC [Concomitant]
     Active Substance: CETIRIZINE HYDROCHLORIDE
     Dosage: UNK
  2. PREDNISONE. [Concomitant]
     Active Substance: PREDNISONE
     Dosage: 10 MG, QID
     Route: 048
  3. PREDNISONE. [Concomitant]
     Active Substance: PREDNISONE
     Dosage: 10 MG, QD
     Route: 048
  4. ADEMPAS [Suspect]
     Active Substance: RIOCIGUAT
     Indication: PULMONARY HYPERTENSION
     Dosage: 1 MG, TID
     Route: 048
  5. XARELTO [Concomitant]
     Active Substance: RIVAROXABAN
  6. HYDROCHLOROTHIAZIDE WITH TRIAMTERENE [Concomitant]
     Active Substance: HYDROCHLOROTHIAZIDE\TRIAMTERENE
     Dosage: UNK
  7. CYMBALTA [Concomitant]
     Active Substance: DULOXETINE HYDROCHLORIDE
     Dosage: UNK
  8. ADEMPAS [Suspect]
     Active Substance: RIOCIGUAT
     Indication: PULMONARY HYPERTENSION
     Dosage: 2 MG, TID
     Route: 048
  9. PREDNISONE. [Concomitant]
     Active Substance: PREDNISONE
     Dosage: 10 MG, BID
     Route: 048
  10. POTASSIUM CHLORIDE. [Concomitant]
     Active Substance: POTASSIUM CHLORIDE
     Dosage: UNK
  11. PREDNISONE. [Concomitant]
     Active Substance: PREDNISONE
     Dosage: 10 MG, TID
     Route: 048
  12. BUSPIRONE HYDROCHLORIDE. [Concomitant]
     Active Substance: BUSPIRONE HYDROCHLORIDE
     Dosage: UNK
  13. ADCIRCA [Concomitant]
     Active Substance: TADALAFIL
     Dosage: 20 MG, BID
     Route: 048
  14. RANEXA [Concomitant]
     Active Substance: RANOLAZINE
     Dosage: UNK
  15. ADEMPAS [Suspect]
     Active Substance: RIOCIGUAT
     Indication: PULMONARY HYPERTENSION
     Dosage: UNK
     Dates: start: 20160525
  16. ADEMPAS [Suspect]
     Active Substance: RIOCIGUAT
     Indication: PULMONARY HYPERTENSION
     Dosage: 1.5 MG, TID
     Route: 048
  17. LETAIRIS [Concomitant]
     Active Substance: AMBRISENTAN
     Dosage: 10 MG, QD
     Route: 048
  18. AZITHROMYCIN ANHYDROUS. [Concomitant]
     Active Substance: AZITHROMYCIN ANHYDROUS
     Dosage: 250 MG, UNK
  19. PRAVASTATIN. [Concomitant]
     Active Substance: PRAVASTATIN
     Dosage: UNK

REACTIONS (31)
  - Abnormal weight gain [None]
  - Headache [Unknown]
  - Pyrexia [None]
  - Bronchospasm [None]
  - Pollakiuria [None]
  - Headache [Recovered/Resolved]
  - Dyspnoea [None]
  - Oxygen saturation decreased [None]
  - Atrial fibrillation [None]
  - Atelectasis [None]
  - Chest X-ray abnormal [None]
  - Nausea [Recovered/Resolved]
  - Dizziness [Unknown]
  - Sinusitis [None]
  - Sleep apnoea syndrome [None]
  - Hypotension [Unknown]
  - Heart rate irregular [Unknown]
  - Blood creatinine increased [None]
  - Alopecia [None]
  - Oedema peripheral [None]
  - Pulmonary function test decreased [None]
  - Pain in extremity [None]
  - Condition aggravated [None]
  - Cardiac disorder [None]
  - Swelling [None]
  - Chronic obstructive pulmonary disease [None]
  - Chronic sinusitis [None]
  - Flatulence [None]
  - Breath sounds abnormal [None]
  - Weight decreased [None]
  - Pulmonary congestion [None]

NARRATIVE: CASE EVENT DATE: 20160729
